FAERS Safety Report 8359566-1 (Version None)
Quarter: 2012Q2

REPORT INFORMATION
  Report Type: 
  Country: None (occurrence: None)
  Receive Date: 20120515
  Receipt Date: 20120509
  Transmission Date: 20120825
  Serious: Yes (Hospitalization)
  Sender: FDA-Public Use
  Company Number: IT-ELI_LILLY_AND_COMPANY-IT201205002880

PATIENT
  Sex: Female

DRUGS (7)
  1. ZOFENOPRIL CALCIUM [Concomitant]
     Dosage: 1 DF, UNKNOWN
     Route: 048
  2. HUMALOG [Suspect]
     Dosage: 10 DF, TID
     Route: 058
  3. LANTUS [Concomitant]
     Dosage: 20 IU, UNKNOWN
     Route: 058
  4. HYDROCHLOROTHIAZIDE W/OLMESARTAN MEDOXOMIL [Concomitant]
     Indication: HYPERTENSION
     Dosage: 1 DF, QD
     Route: 048
     Dates: start: 20100429, end: 20120429
  5. LANTUS [Concomitant]
     Indication: DIABETES MELLITUS
     Dosage: 24 IU, QD
     Route: 058
     Dates: start: 20090429, end: 20120429
  6. NEBIVOLOL HCL [Concomitant]
     Dosage: 1 DF, UNKNOWN
     Route: 048
  7. HUMALOG [Suspect]
     Indication: DIABETES MELLITUS
     Dosage: 36 IU, QD
     Route: 058
     Dates: start: 20090429, end: 20120429

REACTIONS (3)
  - HYPOGLYCAEMIA [None]
  - HYPOKALAEMIA [None]
  - BLOOD GLUCOSE INCREASED [None]
